FAERS Safety Report 12162262 (Version 1)
Quarter: 2016Q1

REPORT INFORMATION
  Report Type: Spontaneous
  Country: US (occurrence: None)
  Receive Date: 20160308
  Receipt Date: 20160308
  Transmission Date: 20160526
  Serious: Yes (Life-Threatening, Hospitalization)
  Sender: FDA-Public Use
  Company Number: None

PATIENT
  Age: 36 Year
  Sex: Female
  Weight: 65.1 kg

DRUGS (7)
  1. PHENERGAN [Concomitant]
     Active Substance: PROMETHAZINE HYDROCHLORIDE
  2. DEPO-PROVERA [Concomitant]
     Active Substance: MEDROXYPROGESTERONE ACETATE
  3. FLEXERIL [Concomitant]
     Active Substance: CYCLOBENZAPRINE HYDROCHLORIDE
  4. FLONASE [Concomitant]
     Active Substance: FLUTICASONE PROPIONATE
  5. MEPIVICAINE [Suspect]
     Active Substance: MEPIVACAINE\MEPIVACAINE HYDROCHLORIDE
     Indication: CONTRACEPTION
     Dosage: 30 ML Q 0.5% OTO PARACERVICAL?12-2015 ONLY
     Dates: start: 201512
  6. NORCO [Concomitant]
     Active Substance: ACETAMINOPHEN\HYDROCODONE BITARTRATE
  7. MVI [Concomitant]
     Active Substance: VITAMINS

REACTIONS (7)
  - Generalised tonic-clonic seizure [None]
  - Brain oedema [None]
  - Anaphylactic reaction [None]
  - Incorrect route of drug administration [None]
  - Cardiac arrest [None]
  - Brain injury [None]
  - Brain death [None]

NARRATIVE: CASE EVENT DATE: 20151202
